FAERS Safety Report 20509813 (Version 2)
Quarter: 2022Q1

REPORT INFORMATION
  Report Type: Report from Study
  Country: NL (occurrence: NL)
  Receive Date: 20220224
  Receipt Date: 20220318
  Transmission Date: 20220423
  Serious: Yes (Hospitalization)
  Sender: FDA-Public Use
  Company Number: NL-CELLTRION INC.-2021NL018981

PATIENT

DRUGS (2)
  1. INFLIXIMAB [Suspect]
     Active Substance: INFLIXIMAB
     Dosage: 20 MG, 1X/DAY
     Route: 064
  2. THIOGUANINE ANHYDROUS [Suspect]
     Active Substance: THIOGUANINE ANHYDROUS
     Dosage: 20 MG, 1X/DAY
     Route: 064

REACTIONS (3)
  - Hypotonia [Recovered/Resolved]
  - Moaning [Recovered/Resolved]
  - Foetal exposure during pregnancy [Unknown]
